FAERS Safety Report 7323541-6 (Version None)
Quarter: 2011Q1

REPORT INFORMATION
  Report Type: 
  Country: None (occurrence: None)
  Receive Date: 20110301
  Receipt Date: 20110223
  Transmission Date: 20110831
  Serious: Yes (Hospitalization)
  Sender: FDA-Public Use
  Company Number: FR-ROCHE-757164

PATIENT
  Sex: Female
  Weight: 68 kg

DRUGS (3)
  1. DOCETAXEL [Suspect]
     Dosage: LAST DOSE PRIOR TO SAE: 17 JANUARY 2011, DOSAGE FORM REPORTED AS 75
     Route: 042
     Dates: start: 20101021
  2. EUPANTOL [Concomitant]
  3. BEVACIZUMAB [Suspect]
     Dosage: LAST DOSE PRIOR TO SAE: 17 JANUARY 2011, DOSAGE FORM REPORTED AS 15
     Route: 042
     Dates: start: 20101021

REACTIONS (1)
  - INTESTINAL OBSTRUCTION [None]
